FAERS Safety Report 20182138 (Version 1)
Quarter: 2021Q4

REPORT INFORMATION
  Report Type: Spontaneous
  Country: US (occurrence: None)
  Receive Date: 20211214
  Receipt Date: 20211214
  Transmission Date: 20220303
  Serious: No
  Sender: FDA-Public Use
  Company Number: None

PATIENT
  Age: 74 Year
  Sex: Female
  Weight: 94.5 kg

DRUGS (1)
  1. ALENDRONATE SODIUM [Suspect]
     Active Substance: ALENDRONATE SODIUM
     Indication: Osteopenia
     Dosage: OTHER FREQUENCY : WEEKLY;?
     Route: 048
     Dates: start: 20211205, end: 20211214

REACTIONS (7)
  - Bone pain [None]
  - Arthralgia [None]
  - Myalgia [None]
  - Abdominal discomfort [None]
  - Nausea [None]
  - Headache [None]
  - Musculoskeletal stiffness [None]

NARRATIVE: CASE EVENT DATE: 20211212
